FAERS Safety Report 4952174-1 (Version None)
Quarter: 2006Q1

REPORT INFORMATION
  Report Type: 
  Country: None (occurrence: None)
  Receive Date: 20060320
  Receipt Date: 20060308
  Transmission Date: 20060701
  Serious: Yes (Death)
  Sender: FDA-Public Use
  Company Number: FABR-11380

PATIENT
  Age: 64 Year
  Sex: Male
  Weight: 70 kg

DRUGS (6)
  1. FABRAZYME [Suspect]
     Indication: FABRY'S DISEASE
     Dosage: 70 MG Q2WKS IV
     Route: 042
     Dates: start: 20040922, end: 20060103
  2. APRINDINE HYDROCHLORIDE [Concomitant]
  3. DICLOFENAC SODIUM [Concomitant]
  4. BETAMETHASONE [Concomitant]
  5. D-CHLORPHENIRAMINE MALEATE [Concomitant]
  6. WARFARIN POTASSIUM [Concomitant]

REACTIONS (2)
  - CARDIAC ARREST [None]
  - MYOCARDIAL INFARCTION [None]
